FAERS Safety Report 4669320-X (Version None)
Quarter: 2005Q2

REPORT INFORMATION
  Report Type: 
  Country: None (occurrence: None)
  Receive Date: 20050519
  Receipt Date: 20050511
  Transmission Date: 20051028
  Serious: Yes (Other)
  Sender: FDA-Public Use
  Company Number: 2005073632

PATIENT
  Sex: Female

DRUGS (5)
  1. NORVASC [Suspect]
     Indication: HYPERTENSION
     Dosage: 10 (10 MG, SINGLE INTERVAL:  EVERYDAY, ORAL)
     Route: 048
     Dates: start: 20000501
  2. ASPIRIN [Concomitant]
  3. SUSTRATE (PROPATYLNITRATE) [Concomitant]
  4. ATENOL (ATENOLOL) [Concomitant]
  5. SYNTHROID [Concomitant]

REACTIONS (4)
  - CARDIAC DISORDER [None]
  - CORONARY ARTERY SURGERY [None]
  - HAEMORRHAGE [None]
  - VASCULAR OCCLUSION [None]
